FAERS Safety Report 24826099 (Version 6)
Quarter: 2025Q4

REPORT INFORMATION
  Report Type: Spontaneous
  Country: IN (occurrence: IN)
  Receive Date: 20250109
  Receipt Date: 20251105
  Transmission Date: 20260117
  Serious: Yes (Death, Other)
  Sender: PFIZER
  Company Number: IN-PFIZER INC-PV202200059513

PATIENT
  Age: 37 Year
  Sex: Female
  Weight: 27 kg

DRUGS (11)
  1. LORLATINIB [Suspect]
     Active Substance: LORLATINIB
     Indication: Lung adenocarcinoma
     Dosage: 100 MG
     Route: 048
     Dates: start: 202201, end: 202509
  2. LORLATINIB [Suspect]
     Active Substance: LORLATINIB
     Dosage: 100 MG, 1X/DAY
     Route: 048
     Dates: start: 20220903, end: 202307
  3. LORLATINIB [Suspect]
     Active Substance: LORLATINIB
     Dosage: 100 MG, 1X/DAY FOR 3 MONTHS
     Route: 048
  4. LORLATINIB [Suspect]
     Active Substance: LORLATINIB
     Dosage: 100 MG, ALTERNATE DAY
     Route: 048
  5. LEVEPIL [Concomitant]
     Dosage: UNK
  6. FENOFIBRATE\ROSUVASTATIN CALCIUM [Concomitant]
     Active Substance: FENOFIBRATE\ROSUVASTATIN CALCIUM
     Dosage: 20 MG AT NIGHT
  7. CALCIUM\CHOLECALCIFEROL [Concomitant]
     Active Substance: CALCIUM\CHOLECALCIFEROL
     Dosage: UNK, 1X/DAY
  8. ZOLEDRONIC ACID [Concomitant]
     Active Substance: ZOLEDRONIC ACID
     Dosage: 4 MG IN 100ML NS IV OVER 30MINS (DAY CARE)
  9. METHOTREXATE [Concomitant]
     Active Substance: METHOTREXATE
     Dosage: 12 MG
     Route: 037
  10. HYDROCORTISONE [Concomitant]
     Active Substance: HYDROCORTISONE
     Dosage: 24 MG
     Route: 037
  11. DEXAMETHASONE [Concomitant]
     Active Substance: DEXAMETHASONE
     Dosage: 4 MG, 2X/DAY

REACTIONS (23)
  - Cardiopulmonary failure [Fatal]
  - Gamma-glutamyltransferase increased [Unknown]
  - Paraparesis [Unknown]
  - Lung adenocarcinoma [Unknown]
  - Malignant neoplasm progression [Unknown]
  - Metastases to meninges [Unknown]
  - Deafness [Unknown]
  - Weight increased [Unknown]
  - Blood cholesterol increased [Unknown]
  - Central nervous system lesion [Unknown]
  - Hypertransaminasaemia [Unknown]
  - Cough [Unknown]
  - Nasopharyngitis [Unknown]
  - Lipids abnormal [Unknown]
  - Asthenia [Unknown]
  - Pain in extremity [Unknown]
  - Vomiting [Unknown]
  - Mucosal inflammation [Unknown]
  - Gait inability [Unknown]
  - Myalgia [Unknown]
  - Oedema peripheral [Unknown]
  - Decubitus ulcer [Unknown]
  - Off label use [Unknown]

NARRATIVE: CASE EVENT DATE: 20230101
